FAERS Safety Report 6780099-8 (Version None)
Quarter: 2010Q2

REPORT INFORMATION
  Report Type: 
  Country: None (occurrence: None)
  Receive Date: 20100618
  Receipt Date: 20100607
  Transmission Date: 20101027
  Serious: Yes (Hospitalization)
  Sender: FDA-Public Use
  Company Number: US-PFIZER INC-2009191213

PATIENT
  Sex: Male
  Weight: 63 kg

DRUGS (15)
  1. DOXORUBICIN HCL [Suspect]
     Indication: DIFFUSE LARGE B-CELL LYMPHOMA
     Dosage: 50 MG/M2, ON DAY 1 OF A 21-DAY CYCLE
     Route: 042
     Dates: start: 20090123
  2. CYCLOPHOSPHAMIDE [Suspect]
     Indication: DIFFUSE LARGE B-CELL LYMPHOMA
     Dosage: 750 MG/M2, ON DAY 1 OF A 21-DAY CYCLE
     Route: 042
     Dates: start: 20090123
  3. VINCRISTINE [Suspect]
     Indication: DIFFUSE LARGE B-CELL LYMPHOMA
     Dosage: 1.4 MG/M2, ON DAY 1 OF A 21-DAY CYCLE
     Route: 042
     Dates: start: 20090123
  4. PREDNISONE [Suspect]
     Indication: DIFFUSE LARGE B-CELL LYMPHOMA
     Dosage: 100 MG, ON DAYS 1 THROUGH 5 OF A 21-DAY CYCLE
     Route: 048
     Dates: start: 20090123
  5. ENZASTAURINE [Suspect]
     Indication: DIFFUSE LARGE B-CELL LYMPHOMA
     Dosage: 1125 MG, DAILY (1/D)
     Route: 048
     Dates: start: 20090124, end: 20090124
  6. ENZASTAURINE [Suspect]
     Dosage: 500 MG, DAILY (1/D)
     Route: 048
     Dates: start: 20090125, end: 20090319
  7. RITUXIMAB [Suspect]
     Indication: DIFFUSE LARGE B-CELL LYMPHOMA
     Dosage: 375 MG/M2, ON DAY 1 OF A 21-DAY CYCLE
     Route: 042
     Dates: start: 20090123
  8. FENTANYL [Concomitant]
     Dosage: UNK
     Dates: start: 20090320
  9. HYDROMORPHONE [Concomitant]
     Dosage: UNK
     Dates: start: 20090119
  10. IRON [Concomitant]
     Dosage: UNK
     Dates: start: 20090123
  11. MARINOL [Concomitant]
     Dosage: UNK
     Dates: start: 20090113
  12. MEGESTROL [Concomitant]
     Dosage: UNK
     Dates: start: 20090306
  13. OMEPRAZOLE [Concomitant]
     Dosage: UNK
     Dates: start: 20090127
  14. PREDNISONE [Concomitant]
     Dosage: UNK
     Dates: start: 20090106
  15. ZOFRAN [Concomitant]
     Dosage: UNK
     Dates: start: 20090127

REACTIONS (4)
  - ANAEMIA [None]
  - DEHYDRATION [None]
  - FATIGUE [None]
  - NEUTROPENIA [None]
